FAERS Safety Report 23012336 (Version 9)
Quarter: 2023Q4

REPORT INFORMATION
  Report Type: Report from Study
  Country: NL (occurrence: NL)
  Receive Date: 20230930
  Receipt Date: 20231112
  Transmission Date: 20240109
  Serious: Yes (Hospitalization, Other)
  Sender: FDA-Public Use
  Company Number: NL-ABBVIE-5428008

PATIENT
  Sex: Male

DRUGS (9)
  1. CARBIDOPA\LEVODOPA [Suspect]
     Active Substance: CARBIDOPA\LEVODOPA
     Indication: Parkinson^s disease
     Dosage: MD: 3.0 ML, CD: 3.8 ML/H, ED: 2.2 ML?REMAIN AT 16 HRS
     Route: 050
     Dates: start: 20230503, end: 20230908
  2. CARBIDOPA\LEVODOPA [Suspect]
     Active Substance: CARBIDOPA\LEVODOPA
     Dosage: CD 3.3 ML/H?REMAIN AT 24 HRS
     Route: 050
     Dates: start: 20220222
  3. CARBIDOPA\LEVODOPA [Suspect]
     Active Substance: CARBIDOPA\LEVODOPA
     Dosage: MD: 3.0 ML, CD: 3.7 ML/H, ED: 1.7 ML, END: 1.27ML,  REMAINS AT 24 HOURS
     Route: 050
     Dates: start: 20231106
  4. CARBIDOPA\LEVODOPA [Suspect]
     Active Substance: CARBIDOPA\LEVODOPA
     Dosage: CD 3.35ML/H, REMAINS AT 24 HOURS
     Route: 050
     Dates: start: 20231030, end: 20231102
  5. CARBIDOPA\LEVODOPA [Suspect]
     Active Substance: CARBIDOPA\LEVODOPA
     Dosage: MD: 2.8 ML, REMAINS AT 24 HOURS
     Route: 050
     Dates: start: 20230908, end: 20230922
  6. CARBIDOPA\LEVODOPA [Suspect]
     Active Substance: CARBIDOPA\LEVODOPA
     Dosage: MD: 1.0 ML, CD: 3.6 ML/H, ED:1.5ML, CND: 3.0 ML/H, END: 1.2 ML?ED:1.5ML
     Route: 050
     Dates: start: 20231102, end: 20231106
  7. CARBIDOPA\LEVODOPA [Suspect]
     Active Substance: CARBIDOPA\LEVODOPA
     Dosage: MD: 1.0 ML, CD: 3.6 ML/H, ED: 2.2 ML, CND: 3.0 ML/H, END: 1.2 ML,  REMAINS AT 24 HOURS
     Route: 050
     Dates: start: 20230922, end: 20231030
  8. NEUPRO [Concomitant]
     Active Substance: ROTIGOTINE
     Indication: Product used for unknown indication
     Dosage: 6MG/24 HOUR?NEUPRO PLASTER
     Route: 065
  9. POLYETHYLENE GLYCOLS [Concomitant]
     Active Substance: POLYETHYLENE GLYCOLS
     Indication: Bowel movement irregularity
     Route: 065

REACTIONS (36)
  - Ileus [Recovered/Resolved]
  - Hyperkinesia [Not Recovered/Not Resolved]
  - Device dislocation [Recovered/Resolved]
  - Malaise [Unknown]
  - Gastric lavage [Recovered/Resolved]
  - Unevaluable event [Not Recovered/Not Resolved]
  - Device kink [Unknown]
  - Muscle twitching [Not Recovered/Not Resolved]
  - Gait disturbance [Not Recovered/Not Resolved]
  - Muscle spasms [Not Recovered/Not Resolved]
  - Restlessness [Not Recovered/Not Resolved]
  - General physical health deterioration [Not Recovered/Not Resolved]
  - On and off phenomenon [Not Recovered/Not Resolved]
  - Constipation [Recovered/Resolved]
  - Dyskinesia [Recovering/Resolving]
  - Constipation [Recovered/Resolved]
  - Dystonia [Not Recovered/Not Resolved]
  - Parkinson^s disease [Recovering/Resolving]
  - Therapeutic product effect incomplete [Not Recovered/Not Resolved]
  - Muscle spasms [Recovered/Resolved]
  - Unevaluable event [Recovering/Resolving]
  - Device placement issue [Recovered/Resolved]
  - Muscle rigidity [Not Recovered/Not Resolved]
  - Fatigue [Not Recovered/Not Resolved]
  - Unevaluable event [Recovering/Resolving]
  - Hyporesponsive to stimuli [Recovering/Resolving]
  - Unevaluable event [Recovering/Resolving]
  - Mobility decreased [Not Recovered/Not Resolved]
  - Faecaloma [Recovering/Resolving]
  - Refusal of treatment by patient [Unknown]
  - Pyrexia [Recovering/Resolving]
  - Diarrhoea [Not Recovered/Not Resolved]
  - Device issue [Not Recovered/Not Resolved]
  - Enteral nutrition [Not Recovered/Not Resolved]
  - Fatigue [Recovered/Resolved]
  - Dyskinesia [Recovered/Resolved]

NARRATIVE: CASE EVENT DATE: 20230901
